FAERS Safety Report 5261101-1 (Version None)
Quarter: 2007Q1

REPORT INFORMATION
  Report Type: 
  Country: None (occurrence: None)
  Receive Date: 20070309
  Receipt Date: 20070305
  Transmission Date: 20070707
  Serious: Yes (Other)
  Sender: FDA-Public Use
  Company Number: HR-ELI_LILLY_AND_COMPANY-HR200703000828

PATIENT
  Age: 6 Year
  Sex: Female

DRUGS (1)
  1. CECLOR [Suspect]
     Indication: OTITIS MEDIA
     Dosage: 375 MG, 3/D
     Route: 048
     Dates: start: 20070224, end: 20070227

REACTIONS (2)
  - HALLUCINATION [None]
  - NIGHTMARE [None]
